FAERS Safety Report 13259136 (Version 1)
Quarter: 2017Q1

REPORT INFORMATION
  Report Type: Spontaneous
  Country: FR (occurrence: FR)
  Receive Date: 20170222
  Receipt Date: 20170222
  Transmission Date: 20170428
  Serious: Yes (Life-Threatening, Hospitalization, Other)
  Sender: FDA-Public Use
  Company Number: FR-GLAXOSMITHKLINE-B0607308A

PATIENT
  Age: 56 Year
  Sex: Male
  Weight: 79 kg

DRUGS (5)
  1. AUGMENTIN [Suspect]
     Active Substance: AMOXICILLIN\CLAVULANATE POTASSIUM
     Indication: EVIDENCE BASED TREATMENT
  2. NETILMICINE [Suspect]
     Active Substance: NETILMICIN
     Indication: PROSTATITIS
     Dosage: UNK UNK, U
     Route: 030
     Dates: start: 20091026, end: 20091029
  3. AUGMENTIN [Suspect]
     Active Substance: AMOXICILLIN\CLAVULANATE POTASSIUM
     Indication: PROSTATITIS
     Dosage: UNK UNK, U
     Route: 048
     Dates: start: 20091007, end: 20091022
  4. BACTRIM [Suspect]
     Active Substance: SULFAMETHOXAZOLE\TRIMETHOPRIM
     Indication: PROSTATITIS
     Dosage: UNK UNK, U
     Route: 048
     Dates: start: 20091022, end: 20091028
  5. XANAX [Concomitant]
     Active Substance: ALPRAZOLAM
     Route: 065

REACTIONS (25)
  - Pleural effusion [Recovering/Resolving]
  - Prurigo [Recovering/Resolving]
  - Respiratory disorder [Recovering/Resolving]
  - Diastolic dysfunction [Recovering/Resolving]
  - Drug reaction with eosinophilia and systemic symptoms [Recovering/Resolving]
  - Anuria [Recovering/Resolving]
  - Face oedema [Recovering/Resolving]
  - General physical health deterioration [Recovering/Resolving]
  - Shock [Recovered/Resolved]
  - Interstitial lung disease [Recovering/Resolving]
  - Thrombocytopenia [Recovered/Resolved]
  - Bundle branch block right [Recovering/Resolving]
  - Pericardial effusion [Recovering/Resolving]
  - Pyrexia [Recovering/Resolving]
  - Chills [Recovering/Resolving]
  - Neutrophilia [Recovering/Resolving]
  - Hepatocellular injury [Recovered/Resolved]
  - N-terminal prohormone brain natriuretic peptide [Recovering/Resolving]
  - Hypotension [Recovering/Resolving]
  - Blood creatinine increased [Recovering/Resolving]
  - Electrocardiogram T wave amplitude decreased [Recovering/Resolving]
  - Hepatomegaly [Recovering/Resolving]
  - Haemodynamic instability [Recovering/Resolving]
  - Eosinophilia [Recovering/Resolving]
  - Cardiomegaly [Recovering/Resolving]

NARRATIVE: CASE EVENT DATE: 2009
